FAERS Safety Report 13601458 (Version 1)
Quarter: 2017Q2

REPORT INFORMATION
  Report Type: Spontaneous
  Country: US (occurrence: US)
  Receive Date: 20170601
  Receipt Date: 20170601
  Transmission Date: 20170830
  Serious: Yes (Life-Threatening, Other)
  Sender: FDA-Public Use
  Company Number: None

PATIENT
  Age: 62 Year
  Sex: Male
  Weight: 132.79 kg

DRUGS (21)
  1. BALSALAZIDE [Concomitant]
     Active Substance: BALSALAZIDE
  2. LORATADINE. [Concomitant]
     Active Substance: LORATADINE
  3. MULTIVITAMIN (SENIOR) [Concomitant]
  4. FLAXSEED [Concomitant]
     Active Substance: FLAX SEED
  5. CHLORHEX GLU [Concomitant]
  6. ASPIRIN. [Concomitant]
     Active Substance: ASPIRIN
  7. AMLODIPINE 5MG TAB LEG GENERIC FOR AMLODIPINE BESYLATE 5MG TAB [Suspect]
     Active Substance: AMLODIPINE BESYLATE
     Indication: DRUG THERAPY
     Route: 048
     Dates: start: 20170426, end: 20170501
  8. BENZOYL PEROXIDE. [Concomitant]
     Active Substance: BENZOYL PEROXIDE
  9. REFRESH TEARS [Concomitant]
     Active Substance: CARBOXYMETHYLCELLULOSE SODIUM
  10. GAVISCON [Concomitant]
     Active Substance: ALUMINUM HYDROXIDE\MAGNESIUM CARBONATE
  11. ECHINACEA [Concomitant]
     Active Substance: ECHINACEA, UNSPECIFIED
  12. OMEPRAZOLE DR [Concomitant]
     Active Substance: OMEPRAZOLE
  13. XXTRIUM [Concomitant]
  14. CRANBERRY WITH VITAMINS C + E [Concomitant]
  15. CARVEDILOL. [Concomitant]
     Active Substance: CARVEDILOL
  16. NITROSTAT [Concomitant]
     Active Substance: NITROGLYCERIN
  17. ACETAMIL/CODEIN [Concomitant]
  18. FISH OIL [Concomitant]
     Active Substance: FISH OIL
  19. AVIVA INSULIN [Concomitant]
  20. FLUTICASONE PROPIANATE NASAL SPRAY [Concomitant]
  21. ZINC. [Concomitant]
     Active Substance: ZINC

REACTIONS (6)
  - Dyspnoea [None]
  - Contusion [None]
  - Balance disorder [None]
  - Fall [None]
  - Breast mass [None]
  - Visual impairment [None]

NARRATIVE: CASE EVENT DATE: 20170502
